FAERS Safety Report 7793379-4 (Version None)
Quarter: 2011Q4

REPORT INFORMATION
  Report Type: 
  Country: None (occurrence: None)
  Receive Date: 20111003
  Receipt Date: 20110923
  Transmission Date: 20120403
  Serious: Yes (Disabling)
  Sender: FDA-Public Use
  Company Number: DK-ASTRAZENECA-2011SE57179

PATIENT
  Age: 36 Year
  Sex: Male
  Weight: 80 kg

DRUGS (3)
  1. SEROQUEL XR [Suspect]
     Indication: ANXIETY
     Route: 048
     Dates: start: 20090130
  2. VALPROIC ACID [Suspect]
     Indication: BIPOLAR DISORDER
     Route: 048
     Dates: start: 20090320
  3. LYRICA [Suspect]
     Indication: ANXIETY
     Route: 048
     Dates: start: 20091210, end: 20110826

REACTIONS (1)
  - ATONIC URINARY BLADDER [None]
